FAERS Safety Report 23431920 (Version 3)
Quarter: 2024Q1

REPORT INFORMATION
  Report Type: Spontaneous
  Country: US (occurrence: US)
  Receive Date: 20240123
  Receipt Date: 20240308
  Transmission Date: 20240410
  Serious: Yes (Other)
  Sender: FDA-Public Use
  Company Number: US-REGENERON PHARMACEUTICALS, INC.-2023-148258

PATIENT
  Sex: Male

DRUGS (4)
  1. EYLEA [Suspect]
     Active Substance: AFLIBERCEPT
     Indication: Neovascular age-related macular degeneration
     Dosage: EVERY 10 WEEKS, INTO RIGHT EYE, FORMULATION: UNKNOWN
     Route: 031
     Dates: end: 202309
  2. LATANOPROST [Concomitant]
     Active Substance: LATANOPROST
     Indication: Product used for unknown indication
  3. FRESH EYES [CARMELLOSE SODIUM] [Concomitant]
     Indication: Product used for unknown indication
  4. VITAMINS NOS [Concomitant]
     Active Substance: VITAMINS
     Indication: Product used for unknown indication

REACTIONS (5)
  - Neovascular age-related macular degeneration [Unknown]
  - Macular degeneration [Unknown]
  - Disease progression [Unknown]
  - Visual impairment [Unknown]
  - Drug ineffective [Unknown]
